FAERS Safety Report 8316220-X (Version None)
Quarter: 2012Q2

REPORT INFORMATION
  Report Type: 
  Country: None (occurrence: None)
  Receive Date: 20120427
  Receipt Date: 20120417
  Transmission Date: 20120825
  Serious: No
  Sender: FDA-Public Use
  Company Number: US-PFIZER INC-2012101188

PATIENT
  Sex: Female
  Weight: 96.78 kg

DRUGS (2)
  1. POTASSIUM PENICILLIN G [Suspect]
     Route: 065
  2. ERYTHROMYCIN [Suspect]
     Dosage: UNK

REACTIONS (1)
  - DRUG HYPERSENSITIVITY [None]
